FAERS Safety Report 4326225-1 (Version None)
Quarter: 2004Q1

REPORT INFORMATION
  Report Type: 
  Country: None (occurrence: None)
  Receive Date: 20040323
  Receipt Date: 20040116
  Transmission Date: 20041129
  Serious: No
  Sender: FDA-Public Use
  Company Number: USA040156573

PATIENT
  Age: 28 Year
  Sex: Female
  Weight: 82 kg

DRUGS (1)
  1. CIALIS [Suspect]
     Indication: POOR PERIPHERAL CIRCULATION
     Dosage: 10 MG/IN THE MORNING
     Dates: start: 20040110, end: 20040114

REACTIONS (3)
  - PAIN IN EXTREMITY [None]
  - PERIPHERAL COLDNESS [None]
  - POOR PERIPHERAL CIRCULATION [None]
